FAERS Safety Report 5808068-2 (Version None)
Quarter: 2008Q3

REPORT INFORMATION
  Report Type: 
  Country: None (occurrence: None)
  Receive Date: 20080711
  Receipt Date: 20080630
  Transmission Date: 20090109
  Serious: Yes (Disabling)
  Sender: FDA-Public Use
  Company Number: JP-PFIZER INC-2008054721

PATIENT
  Age: 72 Year
  Sex: Female

DRUGS (3)
  1. SOLANAX [Suspect]
     Dosage: DAILY DOSE:.4MG
     Route: 048
  2. AMOBAN [Suspect]
     Dates: start: 20080619, end: 20080101
  3. BROTIZOLAM [Concomitant]

REACTIONS (3)
  - HYPOAESTHESIA FACIAL [None]
  - HYPOAESTHESIA ORAL [None]
  - RASH [None]
